FAERS Safety Report 15846477 (Version 3)
Quarter: 2021Q2

REPORT INFORMATION
  Report Type: Other
  Country: JP (occurrence: JP)
  Receive Date: 20190120
  Receipt Date: 20210621
  Transmission Date: 20210716
  Serious: Yes (Death, Hospitalization)
  Sender: FDA-Public Use
  Company Number: JP-ROCHE-2248265

PATIENT
  Age: 72 Year
  Sex: Female
  Weight: 33.9 kg

DRUGS (1)
  1. ATEZOLIZUMAB. [Suspect]
     Active Substance: ATEZOLIZUMAB
     Indication: NON-SMALL CELL LUNG CANCER
     Route: 041
     Dates: start: 20181225, end: 20181225

REACTIONS (2)
  - Disease progression [Fatal]
  - Encephalopathy [Recovering/Resolving]

NARRATIVE: CASE EVENT DATE: 20190109
